FAERS Safety Report 9825775 (Version 5)
Quarter: 2014Q1

REPORT INFORMATION
  Report Type: Spontaneous
  Country: US (occurrence: US)
  Receive Date: 20140117
  Receipt Date: 20140210
  Transmission Date: 20141002
  Serious: Yes (Other)
  Sender: FDA-Public Use
  Company Number: US-JNJFOC-20140106300

PATIENT
  Sex: Male
  Weight: 112.04 kg

DRUGS (8)
  1. XARELTO [Suspect]
     Indication: CEREBROVASCULAR ACCIDENT PROPHYLAXIS
     Route: 048
  2. XARELTO [Suspect]
     Indication: ATRIAL FIBRILLATION
     Route: 048
  3. CRESTOR [Concomitant]
     Dosage: DOSE: 20 (UNIT NOT SPECIFIED)
     Route: 065
  4. METOPROLOL [Concomitant]
     Route: 065
  5. ZETIA [Concomitant]
     Route: 065
  6. PANTOPRAZOLE [Concomitant]
     Route: 065
  7. COENZYME Q10 [Concomitant]
     Route: 065
  8. FISH OIL [Concomitant]
     Route: 065

REACTIONS (2)
  - Pericardial haemorrhage [Recovered/Resolved]
  - Haemoglobin decreased [Unknown]
